FAERS Safety Report 9146767 (Version 1)
Quarter: 2013Q1

REPORT INFORMATION
  Report Type: Spontaneous
  Country: JP (occurrence: None)
  Receive Date: 20130206
  Receipt Date: 20130206
  Transmission Date: 20140127
  Serious: Yes (Death)
  Sender: FDA-Public Use
  Company Number: FK201300353

PATIENT
  Age: 71 Year
  Sex: Female

DRUGS (10)
  1. HEPARIN [Suspect]
     Indication: THROMBOSIS PROPHYLAXIS
     Dosage: 9000  IU,  TITRATED  PER  DAY,?UNKNOWN  -  UNKNOWN
  2. HUMAN RECOMBINANT GRANULOCYTE COLONY-STIMULATING FACTOR [Concomitant]
  3. FUROSEMIDE (FUROSEMIDE) [Concomitant]
  4. ANGIOTENSIN-COVERTING ENZYME (ANGIOTENSIN II ANTAGONISTS) [Concomitant]
  5. NOREPINEPHRINE (NOREPINEPHRINE) [Concomitant]
  6. PAZUFLOXACIN (PAZUFLOXACIN) [Concomitant]
  7. MEROPENEM (MEROPENEM) [Concomitant]
  8. ADRENALINE (EPINEPHRINE) [Concomitant]
  9. NORADRENALINE (NOREPINEPHRINE) [Concomitant]
  10. VASOPRESSORS [Concomitant]

REACTIONS (16)
  - Myocarditis [None]
  - Heparin-induced thrombocytopenia [None]
  - Urine output decreased [None]
  - Hypotension [None]
  - Intracardiac thrombus [None]
  - Jugular vein thrombosis [None]
  - Medical device complication [None]
  - Stupor [None]
  - Pneumonia [None]
  - Agranulocytosis [None]
  - Hypoxia [None]
  - Cardiac arrest [None]
  - Acidosis [None]
  - Muscle atrophy [None]
  - Bacterial test positive [None]
  - Sepsis [None]
